FAERS Safety Report 4358509-5 (Version None)
Quarter: 2004Q2

REPORT INFORMATION
  Report Type: 
  Country: None (occurrence: None)
  Receive Date: 20040514
  Receipt Date: 20040130
  Transmission Date: 20050107
  Serious: Yes (Congenital Anomaly)
  Sender: FDA-Public Use
  Company Number: FR-GLAXOSMITHKLINE-B0322250A

PATIENT
  Sex: Male
  Weight: 2.5 kg

DRUGS (7)
  1. TRIZIVIR [Suspect]
     Indication: HIV INFECTION
     Dosage: 1TAB TWICE PER DAY
     Dates: start: 20010201, end: 20031223
  2. COMBIVIR [Suspect]
     Indication: HIV INFECTION
     Dosage: 1TAB TWICE PER DAY
     Dates: start: 20031223, end: 20040401
  3. VIRACEPT [Suspect]
     Indication: HIV INFECTION
     Dosage: 5UNIT TWICE PER DAY
     Dates: start: 20031223, end: 20040401
  4. ACETAMINOPHEN [Concomitant]
  5. FLAGYL [Concomitant]
  6. RETROVIR [Concomitant]
     Indication: ANTIVIRAL PROPHYLAXIS
     Dates: start: 20040401, end: 20040401
  7. SYNTOCINON [Concomitant]
     Dates: start: 20040401, end: 20040401

REACTIONS (2)
  - DRUG EXPOSURE DURING PREGNANCY [None]
  - TALIPES [None]
